FAERS Safety Report 4712713-2 (Version None)
Quarter: 2005Q3

REPORT INFORMATION
  Report Type: 
  Country: None (occurrence: None)
  Receive Date: 20050706
  Receipt Date: 20050302
  Transmission Date: 20060218
  Serious: Yes (Hospitalization)
  Sender: FDA-Public Use
  Company Number: 0205001

PATIENT
  Age: 63 Year
  Sex: Female
  Weight: 81.6475 kg

DRUGS (1)
  1. DEPODUR [Suspect]
     Indication: PAIN
     Dosage: 12 MG (ONCE), EPIDURAL
     Route: 008
     Dates: start: 20050105, end: 20050105

REACTIONS (3)
  - HYPOTENSION [None]
  - NAUSEA [None]
  - PRURITUS [None]
